FAERS Safety Report 4675209-2 (Version None)
Quarter: 2005Q2

REPORT INFORMATION
  Report Type: 
  Country: None (occurrence: None)
  Receive Date: 20050526
  Receipt Date: 20050523
  Transmission Date: 20051028
  Serious: Yes (Death)
  Sender: FDA-Public Use
  Company Number: LTI2005A00129

PATIENT
  Age: 79 Year
  Sex: Male

DRUGS (2)
  1. LEUPROLIDE ACETATE [Suspect]
     Indication: PROSTATE CANCER
     Dosage: 11.25 MG (1 IN 3 M)
     Route: 058
  2. FLUTAMIDE [Concomitant]

REACTIONS (1)
  - PULMONARY EMBOLISM [None]
